FAERS Safety Report 6460068-8 (Version None)
Quarter: 2009Q4

REPORT INFORMATION
  Report Type: 
  Country: None (occurrence: None)
  Receive Date: 20091129
  Receipt Date: 20091119
  Transmission Date: 20100525
  Serious: Yes (Hospitalization)
  Sender: FDA-Public Use
  Company Number: PHHO2009SE14403

PATIENT
  Sex: Male
  Weight: 95 kg

DRUGS (2)
  1. CERTICAN [Suspect]
     Indication: LIVER TRANSPLANT
     Dosage: 2 MG, BID
     Route: 048
     Dates: start: 20091012
  2. TACROLIMUS COMP-TAC+ [Suspect]
     Indication: LIVER TRANSPLANT
     Dosage: 1 MG, BID
     Route: 048
     Dates: start: 20090908

REACTIONS (4)
  - LUNG INFILTRATION [None]
  - PNEUMONIA [None]
  - PYREXIA [None]
  - UPPER RESPIRATORY TRACT INFECTION [None]
